FAERS Safety Report 5623164-0 (Version None)
Quarter: 2008Q1

REPORT INFORMATION
  Report Type: 
  Country: None (occurrence: None)
  Receive Date: 20080212
  Receipt Date: 20080206
  Transmission Date: 20080703
  Serious: Yes (Other)
  Sender: FDA-Public Use
  Company Number: US-ASTRAZENECA-2008UW02478

PATIENT
  Sex: Female

DRUGS (1)
  1. LISINOPRIL AND HYDROCHLOROTHIAZIDE [Suspect]
     Indication: HYPERTENSION
     Route: 048

REACTIONS (5)
  - AMNESIA [None]
  - COGNITIVE DISORDER [None]
  - HYPOPARATHYROIDISM [None]
  - MITRAL VALVE DISEASE [None]
  - TYPE 2 DIABETES MELLITUS [None]
